FAERS Safety Report 25431668 (Version 1)
Quarter: 2025Q2

REPORT INFORMATION
  Report Type: Spontaneous
  Country: GB (occurrence: GB)
  Receive Date: 20250613
  Receipt Date: 20250613
  Transmission Date: 20250717
  Serious: Yes (Other)
  Sender: ASCEND THERAPEUTICS US, LLC
  Company Number: GB-Ascend Therapeutics US, LLC-2178524

PATIENT
  Sex: Female

DRUGS (2)
  1. ANDROGEL [Suspect]
     Active Substance: TESTOSTERONE
     Indication: Adverse drug reaction
  2. TESTOSTERONE [Suspect]
     Active Substance: TESTOSTERONE

REACTIONS (1)
  - Pelvic pain [Not Recovered/Not Resolved]
